FAERS Safety Report 9476864 (Version 1)
Quarter: 2013Q3

REPORT INFORMATION
  Report Type: Spontaneous
  Country: JP (occurrence: JP)
  Receive Date: 20130826
  Receipt Date: 20130826
  Transmission Date: 20140515
  Serious: Yes (Death, Other)
  Sender: FDA-Public Use
  Company Number: JP-ABBOTT-13P-087-1137875-00

PATIENT
  Age: 46 Year
  Sex: Female

DRUGS (5)
  1. CICLOSPORINE [Suspect]
     Indication: RHEUMATOID ARTHRITIS
  2. MYCOPHENOLATE MOFETIL [Suspect]
     Indication: RHEUMATOID ARTHRITIS
  3. LAMIVUDINE [Suspect]
     Indication: RHEUMATOID ARTHRITIS
  4. METHYLPREDNISOLONE [Suspect]
     Indication: RHEUMATOID ARTHRITIS
  5. HYDROXYCHLOROQUINE [Suspect]
     Indication: RHEUMATOID ARTHRITIS

REACTIONS (2)
  - Hepatitis B [Fatal]
  - Hepatitis fulminant [Unknown]
